FAERS Safety Report 13508476 (Version 2)
Quarter: 2017Q2

REPORT INFORMATION
  Report Type: Spontaneous
  Country: US (occurrence: US)
  Receive Date: 20170503
  Receipt Date: 20170505
  Transmission Date: 20170830
  Serious: Yes (Hospitalization)
  Sender: FDA-Public Use
  Company Number: US-UNITED THERAPEUTICS-UNT-2016-008181

PATIENT
  Age: 46 Year
  Sex: Female

DRUGS (3)
  1. REMODULIN [Suspect]
     Active Substance: TREPROSTINIL
     Indication: PULMONARY ARTERIAL HYPERTENSION
     Dosage: 0.08 ?G/KG, CONTINUING
     Route: 058
  2. TADALAFIL [Concomitant]
     Active Substance: TADALAFIL
     Indication: PULMONARY ARTERIAL HYPERTENSION
     Dosage: 40 MG, TOTAL DAILY DOSE
  3. ORENITRAM [Suspect]
     Active Substance: TREPROSTINIL
     Indication: PULMONARY ARTERIAL HYPERTENSION
     Dosage: 11 MG, TID
     Route: 048

REACTIONS (5)
  - Rash [Unknown]
  - Nausea [Unknown]
  - Pulmonary arterial hypertension [Unknown]
  - Vomiting [Unknown]
  - Right ventricular failure [Unknown]
